FAERS Safety Report 6981994-7 (Version None)
Quarter: 2010Q3

REPORT INFORMATION
  Report Type: 
  Country: None (occurrence: None)
  Receive Date: 20100914
  Receipt Date: 20091106
  Transmission Date: 20110219
  Serious: Yes (Hospitalization)
  Sender: FDA-Public Use
  Company Number: US-PFIZER INC-2009295619

PATIENT
  Sex: Female
  Weight: 56.699 kg

DRUGS (14)
  1. LYRICA [Suspect]
     Indication: SCIATICA
     Dosage: 50 MG, 2X/DAY
     Route: 048
     Dates: start: 20070101
  2. LYRICA [Suspect]
     Dosage: 100 MG, 2X/DAY
  3. TEGRETOL [Concomitant]
     Indication: BIPOLAR DISORDER
     Dosage: UNK
  4. LAMICTAL [Concomitant]
     Dosage: UNK
  5. PRIMIDONE [Concomitant]
     Dosage: UNK
  6. WELLBUTRIN [Concomitant]
     Dosage: UNK
  7. TRAZODONE [Concomitant]
     Indication: BIPOLAR DISORDER
     Dosage: UNK
  8. MORPHINE SULFATE [Concomitant]
     Indication: PAIN
     Dosage: UNK
  9. PRILOSEC [Concomitant]
     Dosage: UNK
  10. ESTRATEST [Concomitant]
     Dosage: UNK
  11. IBANDRONATE SODIUM [Concomitant]
     Indication: OSTEOPOROSIS
     Dosage: UNK
  12. ALLEGRA D 24 HOUR [Concomitant]
     Indication: HYPERSENSITIVITY
     Dosage: UNK
  13. TROSPIUM [Concomitant]
     Indication: INCONTINENCE
     Dosage: UNK
  14. OXYMORPHONE [Concomitant]
     Dosage: UNK

REACTIONS (2)
  - BLOOD PRESSURE DECREASED [None]
  - SLEEP DISORDER [None]
